FAERS Safety Report 18947918 (Version 2)
Quarter: 2021Q1

REPORT INFORMATION
  Report Type: Report from Study
  Country: None (occurrence: US)
  Receive Date: 20210226
  Receipt Date: 20210310
  Transmission Date: 20210420
  Serious: Yes (Hospitalization)
  Sender: FDA-Public Use
  Company Number: US-ABBVIE-21P-163-3784942-00

PATIENT
  Age: 6 Year
  Sex: Female
  Weight: 25.6 kg

DRUGS (8)
  1. EPINEPHRINE. [Concomitant]
     Active Substance: EPINEPHRINE
     Indication: HYPERSENSITIVITY
     Route: 030
     Dates: start: 2018
  2. FLUCINONIDE [Concomitant]
     Indication: DERMATITIS ATOPIC
     Dosage: 1 APPLICATION
     Route: 061
     Dates: start: 20200303
  3. MUPIROCIN. [Concomitant]
     Active Substance: MUPIROCIN
     Indication: DERMATITIS ATOPIC
     Dosage: 1 APPLICATION
     Route: 061
     Dates: start: 20200310
  4. UPADACITINIB [Suspect]
     Active Substance: UPADACITINIB
     Dosage: ORAL SOLUTION
     Route: 048
     Dates: start: 20210301
  5. CERAVE [Concomitant]
     Indication: DRY SKIN PROPHYLAXIS
     Dosage: 1 APPLICATION
     Route: 061
     Dates: start: 20200724
  6. UPADACITINIB [Suspect]
     Active Substance: UPADACITINIB
     Indication: DERMATITIS ATOPIC
     Dosage: TABLET
     Route: 048
     Dates: start: 20200924, end: 20200930
  7. UPADACITINIB [Suspect]
     Active Substance: UPADACITINIB
     Dosage: ORAL SOLUTION
     Route: 048
     Dates: start: 20201001, end: 20210219
  8. CEPHALEXIN. [Concomitant]
     Active Substance: CEPHALEXIN
     Indication: DERMATITIS ATOPIC
     Route: 048
     Dates: start: 20210212, end: 20210222

REACTIONS (1)
  - Herpes zoster cutaneous disseminated [Not Recovered/Not Resolved]

NARRATIVE: CASE EVENT DATE: 20210216
